FAERS Safety Report 23509550 (Version 1)
Quarter: 2024Q1

REPORT INFORMATION
  Report Type: Spontaneous
  Country: US (occurrence: US)
  Receive Date: 20240210
  Receipt Date: 20240210
  Transmission Date: 20240410
  Serious: Yes (Other)
  Sender: FDA-Public Use
  Company Number: US-ABBVIE-5628734

PATIENT
  Age: 14 Year
  Sex: Female

DRUGS (1)
  1. CEFTAROLINE FOSAMIL [Suspect]
     Active Substance: CEFTAROLINE FOSAMIL
     Indication: Product used for unknown indication
     Route: 042

REACTIONS (6)
  - Cystic fibrosis [Unknown]
  - Bronchiectasis [Unknown]
  - Mycobacterium abscessus infection [Unknown]
  - Pulmonary function test abnormal [Unknown]
  - Computerised tomogram abnormal [Unknown]
  - Pneumonia bacterial [Unknown]
